FAERS Safety Report 7876802-6 (Version None)
Quarter: 2011Q4

REPORT INFORMATION
  Report Type: 
  Country: None (occurrence: None)
  Receive Date: 20111031
  Receipt Date: 20111021
  Transmission Date: 20120403
  Serious: Yes (Other)
  Sender: FDA-Public Use
  Company Number: US-ASTRAZENECA-2011SE58184

PATIENT
  Age: 89 Year
  Sex: Male

DRUGS (2)
  1. CRESTOR [Suspect]
     Route: 048
  2. SIMVASTATIN [Suspect]
     Route: 065

REACTIONS (4)
  - BEDRIDDEN [None]
  - PAIN [None]
  - BACK PAIN [None]
  - FALL [None]
